FAERS Safety Report 17139690 (Version 1)
Quarter: 2019Q4

REPORT INFORMATION
  Report Type: Spontaneous
  Country: NL (occurrence: NL)
  Receive Date: 20191211
  Receipt Date: 20191211
  Transmission Date: 20200122
  Serious: Yes (Other)
  Sender: FDA-Public Use
  Company Number: NL-TEVA-2019-NL-1148827

PATIENT
  Sex: Male

DRUGS (6)
  1. LANOXIN [Suspect]
     Active Substance: DIGOXIN
     Indication: PRODUCT USED FOR UNKNOWN INDICATION
     Dates: start: 2002
  2. ATORVASTATINE 80 MG [Concomitant]
     Dates: start: 2002
  3. ACENOCOUMAROL [Concomitant]
     Active Substance: ACENOCOUMAROL
     Dates: start: 2002
  4. LANOXIN [Concomitant]
     Active Substance: DIGOXIN
     Route: 065
  5. METOPROLOL. [Concomitant]
     Active Substance: METOPROLOL
     Route: 065
  6. LISINOPRIL TABLET, 5 MG (MILLIGRAM) [Suspect]
     Active Substance: LISINOPRIL
     Indication: PRODUCT USED FOR UNKNOWN INDICATION
     Dates: start: 201909

REACTIONS (5)
  - Prostate cancer [Recovered/Resolved with Sequelae]
  - Malignant polyp [Recovered/Resolved with Sequelae]
  - Malaise [Not Recovered/Not Resolved]
  - Presyncope [Not Recovered/Not Resolved]
  - Balance disorder [Not Recovered/Not Resolved]
